FAERS Safety Report 7146429-2 (Version None)
Quarter: 2010Q4

REPORT INFORMATION
  Report Type: 
  Country: None (occurrence: None)
  Receive Date: 20101208
  Receipt Date: 20100902
  Transmission Date: 20110411
  Serious: No
  Sender: FDA-Public Use
  Company Number: US-BRISTOL-MYERS SQUIBB COMPANY-15270978

PATIENT
  Sex: Female

DRUGS (1)
  1. PRAVASTATIN [Suspect]

REACTIONS (2)
  - ARTHRALGIA [None]
  - BLOOD CHOLESTEROL INCREASED [None]
